FAERS Safety Report 13156969 (Version 3)
Quarter: 2017Q4

REPORT INFORMATION
  Report Type: Report from Study
  Country: None (occurrence: AT)
  Receive Date: 20170127
  Receipt Date: 20171102
  Transmission Date: 20180320
  Serious: Yes (Hospitalization)
  Sender: FDA-Public Use
  Company Number: AT-ABBVIE-17K-009-1850895-00

PATIENT

DRUGS (3)
  1. HUMIRA [Suspect]
     Active Substance: ADALIMUMAB
     Route: 058
  2. HUMIRA [Suspect]
     Active Substance: ADALIMUMAB
     Indication: RHEUMATOID ARTHRITIS
     Route: 058
  3. PREDNISOLON [Concomitant]
     Active Substance: PREDNISOLONE
     Indication: PRODUCT USED FOR UNKNOWN INDICATION

REACTIONS (6)
  - Urethral dilation procedure [Recovered/Resolved]
  - Urethral carbuncle [Recovered/Resolved]
  - Urinary tract infection [Unknown]
  - Tonsillitis [Recovered/Resolved]
  - Varicose vein operation [Recovered/Resolved]
  - Macular degeneration [Unknown]

NARRATIVE: CASE EVENT DATE: 20110315
